FAERS Safety Report 16805865 (Version 1)
Quarter: 2019Q3

REPORT INFORMATION
  Report Type: Report from Study
  Country: US (occurrence: US)
  Receive Date: 20190913
  Receipt Date: 20190913
  Transmission Date: 20191005
  Serious: No
  Sender: FDA-Public Use
  Company Number: US-AGIOS-1907US01296

PATIENT

DRUGS (1)
  1. TIBSOVO [Suspect]
     Active Substance: IVOSIDENIB
     Indication: HAEMATOLOGICAL MALIGNANCY
     Dosage: 250 MILLIGRAM, 2 TABLETS (500MG) QD
     Route: 048
     Dates: start: 20190703

REACTIONS (5)
  - Vomiting [Unknown]
  - Nausea [Unknown]
  - Blood potassium decreased [Unknown]
  - Off label use [Unknown]
  - Haemoglobin decreased [Unknown]

NARRATIVE: CASE EVENT DATE: 20190703
